FAERS Safety Report 23216784 (Version 2)
Quarter: 2023Q4

REPORT INFORMATION
  Report Type: Spontaneous
  Country: IT (occurrence: IT)
  Receive Date: 20231122
  Receipt Date: 20231218
  Transmission Date: 20240110
  Serious: Yes (Life-Threatening, Hospitalization, Other)
  Sender: FDA-Public Use
  Company Number: IT-Accord-385229

PATIENT
  Age: 60 Year
  Sex: Male

DRUGS (1)
  1. METHOTREXATE [Suspect]
     Active Substance: METHOTREXATE
     Indication: Product used for unknown indication
     Dosage: HIGH DOSE

REACTIONS (11)
  - Toxicity to various agents [Recovering/Resolving]
  - Renal failure [Not Recovered/Not Resolved]
  - Pancytopenia [Recovered/Resolved]
  - Neutropenia [Recovered/Resolved]
  - Anaemia [Recovered/Resolved]
  - Thrombocytopenia [Recovered/Resolved]
  - Skin exfoliation [Recovered/Resolved]
  - Myelosuppression [Recovered/Resolved]
  - Genital erosion [Recovered/Resolved]
  - Oral mucosa erosion [Recovered/Resolved]
  - Skin lesion [Recovered/Resolved]
